FAERS Safety Report 4866321-3 (Version None)
Quarter: 2005Q4

REPORT INFORMATION
  Report Type: 
  Country: None (occurrence: None)
  Receive Date: 20051221
  Receipt Date: 20051213
  Transmission Date: 20060501
  Serious: Yes (Other)
  Sender: FDA-Public Use
  Company Number: 2005168279

PATIENT
  Sex: Male
  Weight: 63.5036 kg

DRUGS (3)
  1. CELEBREX [Suspect]
     Indication: ARTHRITIS
     Dosage: (DAILY INTERVAL:  EVERY DAY), ORAL
     Route: 048
  2. ZANTAC [Concomitant]
  3. DIAZEPAM [Concomitant]

REACTIONS (2)
  - COLON CANCER [None]
  - STOMACH DISCOMFORT [None]
